FAERS Safety Report 5711816-3 (Version None)
Quarter: 2008Q2

REPORT INFORMATION
  Report Type: 
  Country: None (occurrence: None)
  Receive Date: 20080416
  Receipt Date: 20080411
  Transmission Date: 20081010
  Serious: Yes (Hospitalization)
  Sender: FDA-Public Use
  Company Number: 2007SP020920

PATIENT
  Age: 55 Year
  Sex: Male

DRUGS (5)
  1. TEMODAL [Suspect]
     Indication: OLIGODENDROGLIOMA
     Dosage: ;PO ;PO
     Route: 048
     Dates: start: 20071003, end: 20071007
  2. TEMODAL [Suspect]
     Indication: OLIGODENDROGLIOMA
     Dosage: ;PO ;PO
     Route: 048
     Dates: start: 20071201
  3. ZOPHREN [Concomitant]
  4. TRILEPTAL [Concomitant]
  5. LAMICTAL [Concomitant]

REACTIONS (7)
  - HYPERTHERMIA [None]
  - MUSCLE SWELLING [None]
  - MYALGIA [None]
  - MYOSITIS [None]
  - OEDEMA PERIPHERAL [None]
  - OLIGODENDROGLIOMA [None]
  - PAIN IN EXTREMITY [None]
